FAERS Safety Report 4635545-2 (Version None)
Quarter: 2005Q2

REPORT INFORMATION
  Report Type: 
  Country: None (occurrence: None)
  Receive Date: 20050414
  Receipt Date: 20050331
  Transmission Date: 20051028
  Serious: No
  Sender: FDA-Public Use
  Company Number: 10701

PATIENT
  Age: 73 Year
  Sex: Female

DRUGS (2)
  1. AMIODARONE [Suspect]
     Indication: ARRHYTHMIA
     Dosage: 200 MG/200 MG ONCE
  2. CORTICOSTEROIDS [Concomitant]

REACTIONS (4)
  - ANGIONEUROTIC OEDEMA [None]
  - BLOOD CORTICOTROPHIN DECREASED [None]
  - CUSHING'S SYNDROME [None]
  - HYPERGLYCAEMIA [None]
